FAERS Safety Report 20985314 (Version 3)
Quarter: 2023Q2

REPORT INFORMATION
  Report Type: Report from Study
  Country: US (occurrence: US)
  Receive Date: 20220621
  Receipt Date: 20230629
  Transmission Date: 20230722
  Serious: Yes (Other)
  Sender: FDA-Public Use
  Company Number: US-ARGENX-2022-ARGX-US001001

PATIENT

DRUGS (1)
  1. VYVGART [Suspect]
     Active Substance: EFGARTIGIMOD ALFA-FCAB
     Indication: Myasthenia gravis
     Dosage: 10 MG/KG
     Dates: start: 20220214

REACTIONS (4)
  - Cataract operation [Unknown]
  - Skin neoplasm excision [Unknown]
  - Malaise [Unknown]
  - Nerve compression [Unknown]

NARRATIVE: CASE EVENT DATE: 20220601
